FAERS Safety Report 9170264 (Version 1)
Quarter: 2013Q1

REPORT INFORMATION
  Report Type: Spontaneous
  Country: DK (occurrence: None)
  Receive Date: 20130308
  Receipt Date: 20130308
  Transmission Date: 20140127
  Serious: Yes (Other)
  Sender: FDA-Public Use
  Company Number: FK201300641

PATIENT
  Age: 44 Year
  Sex: Female

DRUGS (8)
  1. PACLITAXEL  (PACLITAXEL) [Suspect]
     Indication: PRODUCT USED FOR UNKNOWN INDICATION
     Dates: start: 201206
  2. GEMCITABINE (GEMCITABINE) [Suspect]
     Indication: PRODUCT USED FOR UNKNOWN INDICATION
     Dates: start: 201201
  3. HERCEPTIN (TRASTUZUMAB) [Suspect]
     Indication: PRODUCT USED FOR UNKNOWN INDICATION
     Dates: end: 201002
  4. XELODA [Suspect]
     Indication: PRODUCT USED FOR UNKNOWN INDICATION
     Dates: start: 201105, end: 201201
  5. TAXOTERE (DOCETAXEL) [Suspect]
     Indication: PRODUCT USED FOR UNKNOWN INDICATION
     Dates: start: 201206
  6. ERIBULIN [Suspect]
     Indication: BREAST CANCER
     Dates: start: 2006
  7. VINORELBINE [Suspect]
     Indication: PRODUCT USED FOR UNKNOWN INDICATION
     Dates: end: 201002
  8. LAPATINIB [Suspect]
     Indication: PRODUCT USED FOR UNKNOWN INDICATION
     Dates: start: 201105, end: 201201

REACTIONS (3)
  - Disease progression [None]
  - Ejection fraction abnormal [None]
  - Haematotoxicity [None]
